FAERS Safety Report 19625415 (Version 1)
Quarter: 2021Q3

REPORT INFORMATION
  Report Type: Spontaneous
  Country: US (occurrence: US)
  Receive Date: 20210728
  Receipt Date: 20210728
  Transmission Date: 20211014
  Serious: No
  Sender: FDA-Public Use
  Company Number: US-PFIZER INC-2021459417

PATIENT
  Age: 67 Year
  Sex: Male

DRUGS (1)
  1. INLYTA [Suspect]
     Active Substance: AXITINIB
     Indication: RENAL CANCER
     Dosage: 5 MG

REACTIONS (12)
  - Dysphonia [Unknown]
  - Nausea [Recovered/Resolved]
  - Dry throat [Unknown]
  - Oral pain [Unknown]
  - Dry mouth [Recovered/Resolved]
  - Swollen tongue [Recovered/Resolved]
  - Diarrhoea [Unknown]
  - Vomiting [Unknown]
  - Product dose omission issue [Unknown]
  - Decreased appetite [Unknown]
  - Weight decreased [Unknown]
  - Rash [Unknown]
